FAERS Safety Report 5702141-5 (Version None)
Quarter: 2008Q2

REPORT INFORMATION
  Report Type: 
  Country: None (occurrence: None)
  Receive Date: 20080411
  Receipt Date: 20080331
  Transmission Date: 20081010
  Serious: Yes (Other)
  Sender: FDA-Public Use
  Company Number: US-ROCHE-556137

PATIENT
  Sex: Female
  Weight: 56.7 kg

DRUGS (5)
  1. BONIVA [Suspect]
     Indication: OSTEOPOROSIS
     Route: 065
     Dates: start: 20040615, end: 20070901
  2. CALCIUM [Concomitant]
     Indication: OSTEOPOROSIS
  3. COZAAR [Concomitant]
     Indication: HYPERTENSION
  4. NORVASC [Concomitant]
     Indication: HYPERTENSION
  5. ESTRADIOL [Concomitant]
     Indication: OSTEOPOROSIS

REACTIONS (3)
  - FALL [None]
  - INTERVERTEBRAL DISC PROTRUSION [None]
  - PELVIC FRACTURE [None]
